FAERS Safety Report 7416303-2 (Version None)
Quarter: 2011Q2

REPORT INFORMATION
  Report Type: 
  Country: None (occurrence: None)
  Receive Date: 20110414
  Receipt Date: 20110404
  Transmission Date: 20111010
  Serious: Yes (Hospitalization, Other)
  Sender: FDA-Public Use
  Company Number: FR-ELI_LILLY_AND_COMPANY-FR201104001755

PATIENT
  Sex: Male

DRUGS (2)
  1. PROFENID [Concomitant]
     Indication: SCIATICA
     Dosage: UNK
     Route: 065
     Dates: start: 20101124, end: 20101212
  2. GEMZAR [Suspect]
     Indication: PANCREATIC CARCINOMA
     Dosage: 2015 MG, UNK
     Route: 042
     Dates: start: 20100621, end: 20101220

REACTIONS (1)
  - THROMBOTIC MICROANGIOPATHY [None]
